FAERS Safety Report 9743786 (Version 1)
Quarter: 2013Q4

REPORT INFORMATION
  Report Type: Spontaneous
  Country: IT (occurrence: IT)
  Receive Date: 20131210
  Receipt Date: 20131210
  Transmission Date: 20140711
  Serious: Yes (Life-Threatening)
  Sender: FDA-Public Use
  Company Number: IT-TEVA-448187ISR

PATIENT
  Age: 56 Year
  Sex: Male
  Weight: 82 kg

DRUGS (7)
  1. FUROSEMIDE [Suspect]
     Indication: LOCALISED OEDEMA
  2. RUXOLITINIB [Suspect]
     Indication: MYELOFIBROSIS
     Dosage: 40 MG DAILY
     Route: 048
     Dates: start: 20130320, end: 20130612
  3. CARDURA - 2 MG COMPRESSE [Concomitant]
     Indication: PRODUCT USED FOR UNKNOWN INDICATION
  4. ALLOPURINOL [Concomitant]
     Indication: PRODUCT USED FOR UNKNOWN INDICATION
  5. ACETYLSALICYLIC ACID [Concomitant]
     Indication: PRODUCT USED FOR UNKNOWN INDICATION
  6. METOPROLOL [Concomitant]
     Indication: PRODUCT USED FOR UNKNOWN INDICATION
  7. INSULIN [Concomitant]
     Indication: PRODUCT USED FOR UNKNOWN INDICATION

REACTIONS (1)
  - Renal failure acute [Unknown]
